FAERS Safety Report 5607009-0 (Version None)
Quarter: 2008Q1

REPORT INFORMATION
  Report Type: 
  Country: None (occurrence: None)
  Receive Date: 20080129
  Receipt Date: 20080118
  Transmission Date: 20080703
  Serious: Yes (Other)
  Sender: FDA-Public Use
  Company Number: US-PFIZER INC-2008007528

PATIENT
  Sex: Female
  Weight: 46.7 kg

DRUGS (3)
  1. CHANTIX [Suspect]
     Indication: SMOKING CESSATION THERAPY
  2. ADVAIR DISKUS 100/50 [Concomitant]
  3. CORTICOSTEROIDS [Concomitant]

REACTIONS (3)
  - ALCOHOL POISONING [None]
  - DRUG DOSE OMISSION [None]
  - FOOT OPERATION [None]
